FAERS Safety Report 5792585-8 (Version None)
Quarter: 2008Q2

REPORT INFORMATION
  Report Type: 
  Country: None (occurrence: None)
  Receive Date: 20080626
  Receipt Date: 20080618
  Transmission Date: 20081010
  Serious: Yes (Life-Threatening, Hospitalization, Other)
  Sender: FDA-Public Use
  Company Number: GB-PFIZER INC-2008047462

PATIENT
  Age: 14 Year
  Sex: Male

DRUGS (8)
  1. CYCLOPHOSPHAMIDE [Suspect]
     Indication: B-CELL LYMPHOMA
  2. DOXORUBICIN HCL [Concomitant]
     Indication: B-CELL LYMPHOMA
  3. PREDNISOLONE [Concomitant]
     Indication: B-CELL LYMPHOMA
  4. CYTARABINE [Concomitant]
     Indication: B-CELL LYMPHOMA
  5. METHOTREXATE [Concomitant]
     Indication: B-CELL LYMPHOMA
  6. VINCRISTINE [Concomitant]
     Indication: B-CELL LYMPHOMA
  7. ANTIHYPERTENSIVES [Concomitant]
  8. MESNA [Concomitant]

REACTIONS (2)
  - BLADDER TELANGIECTASIA [None]
  - HAEMATURIA [None]
